FAERS Safety Report 10982494 (Version 1)
Quarter: 2015Q2

REPORT INFORMATION
  Report Type: Spontaneous
  Country: FR (occurrence: None)
  Receive Date: 20150401
  Receipt Date: 20150401
  Transmission Date: 20150821
  Serious: Yes (Death, Life-Threatening)
  Sender: FDA-Public Use
  Company Number: 2015FE00197

PATIENT
  Age: 0 Day
  Sex: Male

DRUGS (2)
  1. PROPESS (DINOPROSTONE) VAGINAL DELIVERY SYSTEM [Suspect]
     Active Substance: DINOPROSTONE
     Route: 064
     Dates: start: 20150118, end: 20150118
  2. PROPESS (DINOPROSTONE) VAGINAL DELIVERY SYSTEM [Suspect]
     Active Substance: DINOPROSTONE
     Indication: LABOUR INDUCTION
     Route: 064
     Dates: start: 20150118, end: 20150118

REACTIONS (8)
  - Caesarean section [None]
  - Foetal exposure during delivery [None]
  - Neonatal disorder [None]
  - Intentional product misuse [None]
  - Apgar score low [None]
  - Foetal distress syndrome [None]
  - Foetal arrhythmia [None]
  - Death neonatal [None]

NARRATIVE: CASE EVENT DATE: 20150119
